FAERS Safety Report 16226629 (Version 1)
Quarter: 2019Q2

REPORT INFORMATION
  Report Type: Spontaneous
  Country: CA (occurrence: CA)
  Receive Date: 20190423
  Receipt Date: 20190423
  Transmission Date: 20190711
  Serious: Yes (Other)
  Sender: FDA-Public Use
  Company Number: CA-TEVA-2019-CA-1039796

PATIENT
  Age: 49 Year
  Sex: Female

DRUGS (13)
  1. DEXAMETHASONE. [Suspect]
     Active Substance: DEXAMETHASONE
     Indication: PLASMA CELL MYELOMA
     Route: 065
  2. ACYCLOVIR. [Concomitant]
     Active Substance: ACYCLOVIR
     Indication: PRODUCT USED FOR UNKNOWN INDICATION
     Dosage: 1600 MILLIGRAM DAILY;
     Route: 065
  3. ZOLEDRONIC ACID [Concomitant]
     Active Substance: ZOLEDRONIC ACID
     Indication: PRODUCT USED FOR UNKNOWN INDICATION
     Route: 041
  4. IXAZOMIB [Suspect]
     Active Substance: IXAZOMIB
     Route: 048
  5. DARATUMUMAB [Concomitant]
     Active Substance: DARATUMUMAB
     Dosage: SOLUTION INTRAVENOUS
     Route: 065
  6. DEXAMETHASONE. [Suspect]
     Active Substance: DEXAMETHASONE
     Route: 048
  7. IXAZOMIB [Suspect]
     Active Substance: IXAZOMIB
     Indication: PLASMA CELL MYELOMA
     Route: 048
  8. PREGABALIN. [Concomitant]
     Active Substance: PREGABALIN
     Indication: PRODUCT USED FOR UNKNOWN INDICATION
     Route: 065
  9. PREGABALIN. [Concomitant]
     Active Substance: PREGABALIN
     Route: 065
  10. IXAZOMIB [Suspect]
     Active Substance: IXAZOMIB
     Route: 048
  11. POMALYST [Suspect]
     Active Substance: POMALIDOMIDE
     Indication: PLASMA CELL MYELOMA
     Route: 048
  12. POMALYST [Suspect]
     Active Substance: POMALIDOMIDE
     Route: 048
  13. FILGRASTIM [Concomitant]
     Active Substance: FILGRASTIM
     Indication: PRODUCT USED FOR UNKNOWN INDICATION
     Route: 058

REACTIONS (6)
  - Hypoaesthesia [Not Recovered/Not Resolved]
  - Muscle spasms [Not Recovered/Not Resolved]
  - Off label use [Not Recovered/Not Resolved]
  - Plasma cell myeloma [Not Recovered/Not Resolved]
  - Avulsion fracture [Not Recovered/Not Resolved]
  - Neutrophil count decreased [Not Recovered/Not Resolved]
